FAERS Safety Report 12201892 (Version 1)
Quarter: 2016Q1

REPORT INFORMATION
  Report Type: Report from Study
  Country: AU (occurrence: AU)
  Receive Date: 20160322
  Receipt Date: 20160322
  Transmission Date: 20160526
  Serious: Yes (Hospitalization)
  Sender: FDA-Public Use
  Company Number: AU-KADMON PHARMACEUTICALS, LLC-KAD201603-000952

PATIENT
  Sex: Male

DRUGS (3)
  1. VIEKIRA PAK [Suspect]
     Active Substance: DASABUVIR\OMBITASVIR\PARITAPREVIR\RITONAVIR
     Indication: HEPATITIS C
     Dosage: TABLET
     Route: 048
     Dates: start: 20151027
  2. RIBAVIRIN. [Suspect]
     Active Substance: RIBAVIRIN
     Dosage: TABLET, 200 MG X 2 IN AM AND 200 MG X 1 AT NIGHT
     Route: 048
     Dates: start: 20151027
  3. RIBAVIRIN. [Suspect]
     Active Substance: RIBAVIRIN
     Indication: HEPATITIS C
     Dosage: TABLET, 200 MG X 2 IN AM AND 200 MG X 3 AT NIGHT
     Route: 048
     Dates: start: 20151027

REACTIONS (1)
  - Syncope [Unknown]
